FAERS Safety Report 16874776 (Version 2)
Quarter: 2019Q4

REPORT INFORMATION
  Report Type: Spontaneous
  Country: US (occurrence: US)
  Receive Date: 20191001
  Receipt Date: 20191029
  Transmission Date: 20200122
  Serious: Yes (Death, Other)
  Sender: FDA-Public Use
  Company Number: US-SHIRE-US201931710

PATIENT
  Age: 57 Year
  Sex: Male

DRUGS (2)
  1. VPRIV [Suspect]
     Active Substance: VELAGLUCERASE ALFA
     Indication: GAUCHER^S DISEASE
     Dosage: 15 DOSAGE FORM (15 VIALS), 2X A WEEK (BI-WEEKLY)
     Route: 042
     Dates: start: 20100426
  2. VPRIV [Suspect]
     Active Substance: VELAGLUCERASE ALFA
     Dosage: 15 DOSAGE FORM (15 VIALS), 2X A WEEK (BI-WEEKLY)
     Route: 042
     Dates: start: 201908

REACTIONS (1)
  - Completed suicide [Unknown]

NARRATIVE: CASE EVENT DATE: 20190919
